FAERS Safety Report 24722144 (Version 4)
Quarter: 2025Q3

REPORT INFORMATION
  Report Type: Report from Study
  Country: JP (occurrence: JP)
  Receive Date: 20241211
  Receipt Date: 20250707
  Transmission Date: 20251020
  Serious: Yes (Life-Threatening, Hospitalization, Other)
  Sender: ASTELLAS
  Company Number: JP-ASTELLAS-2024-AER-023518

PATIENT
  Age: 37 Year
  Sex: Male

DRUGS (10)
  1. XOSPATA [Suspect]
     Active Substance: GILTERITINIB
     Indication: Acute myeloid leukaemia recurrent
     Route: 065
  2. XOSPATA [Suspect]
     Active Substance: GILTERITINIB
     Route: 065
  3. XOSPATA [Suspect]
     Active Substance: GILTERITINIB
     Route: 065
  4. XOSPATA [Suspect]
     Active Substance: GILTERITINIB
     Route: 065
  5. CYTARABINE [Concomitant]
     Active Substance: CYTARABINE
     Indication: Acute myeloid leukaemia
     Route: 065
  6. CYTARABINE [Concomitant]
     Active Substance: CYTARABINE
     Route: 065
  7. IDARUBICIN [Concomitant]
     Active Substance: IDARUBICIN
     Indication: Acute myeloid leukaemia
     Route: 065
  8. FLUDARABINE [Concomitant]
     Active Substance: FLUDARABINE PHOSPHATE
     Indication: Bone marrow conditioning regimen
     Route: 065
  9. MELPHALAN [Concomitant]
     Active Substance: MELPHALAN
     Indication: Bone marrow conditioning regimen
     Route: 065
  10. QUIZARTINIB [Concomitant]
     Active Substance: QUIZARTINIB
     Indication: Acute myeloid leukaemia recurrent
     Route: 065

REACTIONS (9)
  - Sepsis [Unknown]
  - Transplant failure [Unknown]
  - Pneumonia [Unknown]
  - Pleural effusion [Unknown]
  - Pneumonia [Unknown]
  - Pneumonia [Unknown]
  - Platelet count decreased [Unknown]
  - Neutrophil count decreased [Unknown]
  - Liver disorder [Unknown]
